FAERS Safety Report 5237727-8 (Version None)
Quarter: 2007Q1

REPORT INFORMATION
  Report Type: 
  Country: None (occurrence: None)
  Receive Date: 20070214
  Receipt Date: 20070212
  Transmission Date: 20070707
  Serious: Yes (Other)
  Sender: FDA-Public Use
  Company Number: US-BRISTOL-MYERS SQUIBB COMPANY-13667753

PATIENT
  Age: 7 Decade
  Sex: Male

DRUGS (1)
  1. DEFINITY [Suspect]
     Indication: ECHOCARDIOGRAM
     Dosage: 1.3 CC DEFINITY MIXED WITH 8.7 CC SALINE
     Route: 040
     Dates: start: 20070126, end: 20070126

REACTIONS (4)
  - DYSPNOEA [None]
  - FLUSHING [None]
  - RESPIRATORY ARREST [None]
  - SYNCOPE [None]
